FAERS Safety Report 8769999 (Version 1)
Quarter: 2012Q4

REPORT INFORMATION
  Report Type: 
  Country: CO (occurrence: CO)
  Receive Date: 20120906
  Receipt Date: 20120906
  Transmission Date: 20130627
  Serious: Yes (Other)
  Sender: FDA-Public Use
  Company Number: CO-PFIZER INC-2012152184

PATIENT
  Age: 72 Year
  Sex: Female

DRUGS (9)
  1. LYRICA [Suspect]
     Indication: ARTHRITIS
     Dosage: 150 mg, 1x/day at night
     Route: 048
     Dates: start: 2008
  2. LYRICA [Suspect]
     Indication: PAIN MANAGEMENT
  3. ENALAPRIL [Concomitant]
     Indication: BLOOD PRESSURE ABNORMAL
     Dosage: 100 mg, 1x/day
     Route: 048
  4. INSULIN [Concomitant]
     Indication: DIABETES MELLITUS
     Dosage: 14 IU, 3x/day
  5. METOPROLOL [Concomitant]
     Dosage: 100 mg, 2x/day
     Route: 048
  6. EUTIROX [Concomitant]
     Dosage: 125 mg, UNK
  7. CALCIUM CARBONATE [Concomitant]
     Dosage: UNK
  8. LOVASTATIN [Concomitant]
     Dosage: UNK
     Route: 065
  9. ACETYLSALICYLIC ACID [Concomitant]
     Dosage: UNK

REACTIONS (4)
  - Pain in extremity [Not Recovered/Not Resolved]
  - Musculoskeletal pain [Not Recovered/Not Resolved]
  - Osteoarthritis [Not Recovered/Not Resolved]
  - Arthralgia [Not Recovered/Not Resolved]
